FAERS Safety Report 9629953 (Version 1)
Quarter: 2013Q4

REPORT INFORMATION
  Report Type: Spontaneous
  Country: IT (occurrence: IT)
  Receive Date: 20131017
  Receipt Date: 20131017
  Transmission Date: 20140711
  Serious: Yes (Other)
  Sender: FDA-Public Use
  Company Number: IT-ACTAVIS-2013-18707

PATIENT
  Age: 76 Year
  Sex: Male
  Weight: 70 kg

DRUGS (3)
  1. OXALIPLATIN [Suspect]
     Indication: RECTAL CANCER STAGE IV
     Dosage: 85 MG SQUARE METER BODY/CYCLIC
     Route: 042
     Dates: start: 20130406, end: 20130821
  2. FLUOROURACIL (UNKNOWN) [Suspect]
     Indication: RECTAL CANCER STAGE IV
     Dosage: 2400 MG SQUARE METER BODY/CYCLIC
     Route: 042
     Dates: start: 20130406, end: 20130821
  3. ERBITUX [Suspect]
     Indication: RECTAL CANCER STAGE IV
     Dosage: 400 MG SQUARE METER BODY/CYCLIC
     Route: 042
     Dates: start: 20130406, end: 20130821

REACTIONS (2)
  - Blepharitis [Recovering/Resolving]
  - Neutropenia [Recovering/Resolving]
